FAERS Safety Report 16279339 (Version 3)
Quarter: 2020Q1

REPORT INFORMATION
  Report Type: Spontaneous
  Country: DE (occurrence: DE)
  Receive Date: 20190507
  Receipt Date: 20200204
  Transmission Date: 20200409
  Serious: Yes (Hospitalization, Other)
  Sender: FDA-Public Use
  Company Number: DE-AUROBINDO-AUR-APL-2019-024273

PATIENT
  Sex: Female
  Weight: 90 kg

DRUGS (39)
  1. EPIRUBICIN [Suspect]
     Active Substance: EPIRUBICIN
     Dosage: 90 MILLIGRAM/SQ. METER, TOTAL (ONCE/SINGLE)
     Route: 065
     Dates: start: 20190321, end: 20190321
  2. PACLITAXEL. [Suspect]
     Active Substance: PACLITAXEL
     Dosage: 80 MILLIGRAM/SQ. METER, TOTAL (ONCE/SINGLE)
     Route: 065
     Dates: start: 20190704, end: 20190704
  3. CYCLOPHOSPHAMIDE. [Suspect]
     Active Substance: CYCLOPHOSPHAMIDE
     Dosage: 600 MILLIGRAM/SQ. METER, TOTAL (ONCE/SINGLE)
     Route: 065
     Dates: start: 20190321, end: 20190321
  4. BISOPROLOL [Concomitant]
     Active Substance: BISOPROLOL
     Dosage: 2.5 MILLIGRAM, ONCE A DAY (AT NOON)
     Route: 065
     Dates: start: 201707, end: 201905
  5. LEVOTHYROXINE. [Concomitant]
     Active Substance: LEVOTHYROXINE
     Indication: PRODUCT USED FOR UNKNOWN INDICATION
     Dosage: 150 MICROGRAM, ONCE A DAY (MORNING)
     Route: 065
  6. CRATAEGUTT [Concomitant]
     Indication: PRODUCT USED FOR UNKNOWN INDICATION
     Dosage: 450 MILLIGRAM
     Route: 065
     Dates: start: 201607, end: 201905
  7. ATORVASTATIN [Concomitant]
     Active Substance: ATORVASTATIN
     Indication: PRODUCT USED FOR UNKNOWN INDICATION
     Dosage: 80 MILLIGRAM, ONCE A DAY (IN EVENING)
     Route: 065
  8. EPIRUBICIN [Suspect]
     Active Substance: EPIRUBICIN
     Dosage: 90 MILLIGRAM/SQ. METER, TOTAL (ONCE/SINGLE)
     Route: 065
     Dates: start: 20190228, end: 20190228
  9. PACLITAXEL. [Suspect]
     Active Substance: PACLITAXEL
     Dosage: 80 MILLIGRAM/SQ. METER, TOTAL (ONCE/SINGLE)
     Route: 065
     Dates: start: 20190522, end: 20190522
  10. PACLITAXEL. [Suspect]
     Active Substance: PACLITAXEL
     Dosage: 80 MILLIGRAM/SQ. METER, TOTAL (ONCE/SINGLE)
     Route: 065
     Dates: start: 20190529, end: 20190529
  11. BISOPROLOL [Concomitant]
     Active Substance: BISOPROLOL
     Indication: PRODUCT USED FOR UNKNOWN INDICATION
     Dosage: UNK, DOSE CHANGED
     Route: 065
  12. VALSARTAN. [Suspect]
     Active Substance: VALSARTAN
     Dosage: 80 MILLIGRAM, ONCE A DAY (IN EVENING)
     Route: 065
     Dates: start: 201412, end: 201804
  13. PACLITAXEL. [Suspect]
     Active Substance: PACLITAXEL
     Dosage: 80 MILLIGRAM/SQ. METER, TOTAL (ONCE/SINGLE)
     Route: 065
     Dates: start: 20190621, end: 20190621
  14. CYCLOPHOSPHAMIDE. [Suspect]
     Active Substance: CYCLOPHOSPHAMIDE
     Dosage: 600 MILLIGRAM/SQ. METER, TOTAL (ONCE/SINGLE)
     Route: 065
     Dates: start: 20190411, end: 20190411
  15. SELENE [Concomitant]
     Indication: PRODUCT USED FOR UNKNOWN INDICATION
     Dosage: 1 DOSAGE FORM, ONCE A DAY (MORNING)
     Route: 065
  16. CHOLECALCIFEROL [Concomitant]
     Active Substance: CHOLECALCIFEROL
     Indication: PRODUCT USED FOR UNKNOWN INDICATION
     Dosage: 1000 INTERNATIONAL UNIT, ONCE A DAY (MORNING)
     Route: 065
  17. CYCLOPHOSPHAMIDE. [Suspect]
     Active Substance: CYCLOPHOSPHAMIDE
     Indication: BREAST CANCER
     Dosage: 600 MILLIGRAM/SQ. METER, TOTAL (ONCE/SINGLE)
     Route: 065
     Dates: start: 20190207, end: 20190207
  18. PANTOPRAZOLE SODIUM SESQUIHYDRATE [Concomitant]
     Active Substance: PANTOPRAZOLE SODIUM
     Dosage: 20 MILLIGRAM, ONCE A DAY (DAILY MORNINGS)
     Route: 065
     Dates: start: 201412, end: 201905
  19. TELMISARTAN. [Concomitant]
     Active Substance: TELMISARTAN
     Indication: HYPERTENSION
     Dosage: 40 MILLIGRAM, PRN (ADD NEEDED)
     Route: 065
  20. CLOPIDOGREL [Concomitant]
     Active Substance: CLOPIDOGREL BISULFATE
     Indication: PRODUCT USED FOR UNKNOWN INDICATION
     Dosage: UNK
     Route: 065
     Dates: start: 201707, end: 201808
  21. CALCIUM [Concomitant]
     Active Substance: CALCIUM
     Indication: PRODUCT USED FOR UNKNOWN INDICATION
     Dosage: 500 MILLIGRAM, ONCE A DAY (MORNING)
     Route: 065
  22. ASPIRIN. [Concomitant]
     Active Substance: ASPIRIN
     Indication: PRODUCT USED FOR UNKNOWN INDICATION
     Dosage: 100 MILLIGRAM
     Route: 065
     Dates: start: 201412, end: 201905
  23. VALSARTAN. [Suspect]
     Active Substance: VALSARTAN
     Indication: HYPERTENSION
     Dosage: 80 MILLIGRAM, ONCE A DAY (IN EVENING)
     Route: 065
     Dates: start: 201610, end: 2018
  24. EPIRUBICIN [Suspect]
     Active Substance: EPIRUBICIN
     Indication: BREAST CANCER
     Dosage: 90 MILLIGRAM/SQ. METER, TOTAL (ONCE/SINGLE)
     Route: 065
     Dates: start: 20190207, end: 20190207
  25. PACLITAXEL. [Suspect]
     Active Substance: PACLITAXEL
     Indication: BREAST CANCER
     Dosage: 80 MILLIGRAM/SQ. METER, TOTAL (ONCE/SINGLE)
     Route: 065
     Dates: start: 20190516, end: 20190516
  26. PACLITAXEL. [Suspect]
     Active Substance: PACLITAXEL
     Dosage: 80 MILLIGRAM/SQ. METER, TOTAL (ONCE/SINGLE)
     Route: 065
     Dates: start: 20190614, end: 20190614
  27. CYCLOPHOSPHAMIDE. [Suspect]
     Active Substance: CYCLOPHOSPHAMIDE
     Dosage: 600 MILLIGRAM/SQ. METER, TOTAL (ONCE/SINGLE)
     Route: 065
     Dates: start: 20190228, end: 20190228
  28. DICLOFENAC [Suspect]
     Active Substance: DICLOFENAC
     Indication: PRODUCT USED FOR UNKNOWN INDICATION
     Dosage: UNK
     Route: 065
  29. PACLITAXEL. [Suspect]
     Active Substance: PACLITAXEL
     Dosage: 80 MILLIGRAM/SQ. METER, TOTAL (ONCE/SINGLE)
     Route: 065
     Dates: start: 20190711, end: 20190711
  30. MAGNESIUM [Concomitant]
     Active Substance: MAGNESIUM
     Indication: PRODUCT USED FOR UNKNOWN INDICATION
     Dosage: 5 MMOL/5G, ONCE A DAY (MAGNESIUM ION, BAG)
     Route: 065
  31. METAMIZOLE [Concomitant]
     Active Substance: METAMIZOLE
     Indication: PAIN
     Dosage: 30 GTT DROPS, FOUR TIMES/DAY (30 DROPS OF SOLUTION WITH 500 MG/ML, UP TO 4 TIMES PRN)
     Route: 065
  32. MONTELUKAST [Concomitant]
     Active Substance: MONTELUKAST SODIUM
     Indication: PRODUCT USED FOR UNKNOWN INDICATION
     Dosage: 20 MILLIGRAM, ONCE A DAY (EVENING)
     Route: 065
  33. PANTOPRAZOLE SODIUM SESQUIHYDRATE [Concomitant]
     Active Substance: PANTOPRAZOLE SODIUM
     Indication: PRODUCT USED FOR UNKNOWN INDICATION
     Dosage: 20 MILLIGRAM, ONCE A DAY (MORNING)
     Route: 065
  34. TELMISARTAN. [Concomitant]
     Active Substance: TELMISARTAN
     Dosage: 80 MILLIGRAM, ONCE A DAY (IN EVENING)
     Route: 065
     Dates: start: 201804
  35. JODID [Concomitant]
     Active Substance: IODINE
     Indication: PRODUCT USED FOR UNKNOWN INDICATION
     Dosage: 200 MILLIGRAM, ONCE A DAY (MORNING)
     Route: 065
  36. EPIRUBICIN [Suspect]
     Active Substance: EPIRUBICIN
     Dosage: 90 MILLIGRAM/SQ. METER, TOTAL (ONCE/SINGLE)
     Route: 065
     Dates: start: 20190411, end: 20190411
  37. PACLITAXEL. [Suspect]
     Active Substance: PACLITAXEL
     Dosage: 80 MILLIGRAM/SQ. METER, TOTAL (ONCE/SINGLE)
     Route: 065
     Dates: start: 20190607, end: 20190607
  38. BISOPROLOL [Concomitant]
     Active Substance: BISOPROLOL
     Dosage: 2.5 MILLIGRAM, TWO TIMES A DAY (MORNING AND EVENING)
     Route: 065
  39. IBUPROFEN. [Concomitant]
     Active Substance: IBUPROFEN
     Indication: PRODUCT USED FOR UNKNOWN INDICATION
     Dosage: 400 MILLIGRAM, AS NEEDED
     Route: 065

REACTIONS (26)
  - Blood pressure increased [Unknown]
  - Fatigue [Unknown]
  - Drug intolerance [Unknown]
  - Respiratory failure [Unknown]
  - Pleural effusion [Unknown]
  - Hypotension [Unknown]
  - Chest discomfort [Unknown]
  - Haematoma [Unknown]
  - Polyneuropathy [Unknown]
  - Asthenia [Unknown]
  - Breast cancer [Unknown]
  - Cardiac failure [Unknown]
  - Acute myocardial infarction [Unknown]
  - Dyspnoea [Unknown]
  - Pneumonia [Unknown]
  - Leukopenia [Unknown]
  - Pulmonary embolism [Unknown]
  - Ejection fraction decreased [Unknown]
  - Eczema [Unknown]
  - Cough [Unknown]
  - Invasive ductal breast carcinoma [Not Recovered/Not Resolved]
  - Carotid arteriosclerosis [Unknown]
  - Immunodeficiency [Unknown]
  - Pericardial effusion [Unknown]
  - Pulmonary oedema [Unknown]
  - Hepatic steatosis [Unknown]

NARRATIVE: CASE EVENT DATE: 2017
